FAERS Safety Report 12818804 (Version 5)
Quarter: 2020Q3

REPORT INFORMATION
  Report Type: Spontaneous
  Country: JP (occurrence: JP)
  Receive Date: 20161006
  Receipt Date: 20200919
  Transmission Date: 20201102
  Serious: Yes (Hospitalization)
  Sender: FDA-Public Use
  Company Number: JP-UNITED THERAPEUTICS-UNT-2016-014190

PATIENT
  Age: 42 Year
  Sex: Female
  Weight: 49.8 kg

DRUGS (22)
  1. REMODULIN [Suspect]
     Active Substance: TREPROSTINIL
     Dosage: 0.0067 ?G/KG, CONTINUING
     Route: 041
     Dates: start: 201512
  2. PROMAC [Concomitant]
     Active Substance: NITROFURANTOIN
     Indication: CHRONIC GASTRITIS
     Dosage: UNK
     Route: 048
  3. WARFARIN [WARFARIN POTASSIUM] [Concomitant]
     Active Substance: WARFARIN POTASSIUM
     Indication: PULMONARY ARTERIAL HYPERTENSION
     Dosage: UNK
     Route: 048
  4. REMODULIN [Suspect]
     Active Substance: TREPROSTINIL
     Dosage: 0.00667 ?G/KG, CONTINUING
     Route: 041
     Dates: start: 201608, end: 20160906
  5. TRACLEER [Concomitant]
     Active Substance: BOSENTAN
     Indication: PULMONARY ARTERIAL HYPERTENSION
     Dosage: UNK
     Route: 048
     Dates: start: 200704, end: 20160915
  6. ADCIRCA [Concomitant]
     Active Substance: TADALAFIL
     Indication: PULMONARY ARTERIAL HYPERTENSION
     Dosage: UNK
     Route: 048
     Dates: start: 201001
  7. ALDACTONE A [Concomitant]
     Active Substance: SPIRONOLACTONE
     Indication: RIGHT VENTRICULAR FAILURE
     Dosage: UNK
     Route: 048
  8. MUCOSTA [Concomitant]
     Active Substance: REBAMIPIDE
     Indication: CHRONIC GASTRITIS
     Dosage: UNK
     Route: 048
  9. NEXIUM [Concomitant]
     Active Substance: ESOMEPRAZOLE MAGNESIUM
     Indication: GASTROOESOPHAGEAL REFLUX DISEASE
     Dosage: UNK
     Route: 048
  10. FUROSEMIDE. [Concomitant]
     Active Substance: FUROSEMIDE
     Indication: RIGHT VENTRICULAR FAILURE
     Dosage: UNK
     Route: 048
  11. REMODULIN [Suspect]
     Active Substance: TREPROSTINIL
     Indication: PULMONARY ARTERIAL HYPERTENSION
     Dosage: 0.005 ?G/KG, CONTINUING
     Route: 058
     Dates: start: 20160906
  12. SLOW?K [Concomitant]
     Active Substance: POTASSIUM CHLORIDE
     Indication: HYPOKALAEMIA
     Dosage: UNK
     Route: 048
  13. FERROMIA [Concomitant]
     Active Substance: SODIUM FERROUS CITRATE
     Indication: ANAEMIA
     Dosage: UNK
     Route: 048
  14. REMODULIN [Suspect]
     Active Substance: TREPROSTINIL
     Dosage: 0.0071 ?G/KG, CONTINUING
     Route: 041
     Dates: start: 20151216
  15. FLUNITRAZEPAM [Concomitant]
     Active Substance: FLUNITRAZEPAM
     Indication: INSOMNIA
     Dosage: UNK
     Route: 048
  16. FEBURIC [Concomitant]
     Active Substance: FEBUXOSTAT
     Indication: HYPERURICAEMIA
     Dosage: UNK
     Route: 048
  17. PREDONINE [Concomitant]
     Active Substance: PREDNISOLONE
     Indication: PULMONARY ARTERIAL HYPERTENSION
     Dosage: UNK
     Route: 048
  18. OPSUMIT [Concomitant]
     Active Substance: MACITENTAN
     Indication: PULMONARY ARTERIAL HYPERTENSION
     Dosage: UNK
     Route: 048
     Dates: start: 20160916
  19. REMODULIN [Suspect]
     Active Substance: TREPROSTINIL
     Indication: PULMONARY ARTERIAL HYPERTENSION
     Dosage: 0.0156 ?G/KG, CONTINUING
     Route: 041
     Dates: start: 20150510
  20. REMODULIN [Suspect]
     Active Substance: TREPROSTINIL
     Dosage: 0.0142 ?G/KG, CONTINUING
     Route: 041
     Dates: start: 20151130
  21. REMODULIN [Suspect]
     Active Substance: TREPROSTINIL
     Dosage: 0.004 ?G/KG, CONTINUING
     Route: 058
     Dates: start: 20160915
  22. REMODULIN [Suspect]
     Active Substance: TREPROSTINIL
     Dosage: 0.003 ?G/KG, CONTINUING
     Route: 058
     Dates: start: 20160922, end: 20170328

REACTIONS (9)
  - Device related infection [Recovering/Resolving]
  - Infusion site pain [Recovering/Resolving]
  - Infusion site erythema [Recovering/Resolving]
  - Infusion site pruritus [Unknown]
  - Pyelonephritis [Recovering/Resolving]
  - Urinary tract infection [Recovered/Resolved]
  - Infusion site swelling [Recovering/Resolving]
  - Pneumonia [Not Recovered/Not Resolved]
  - Infusion site warmth [Recovering/Resolving]

NARRATIVE: CASE EVENT DATE: 20151130
